FAERS Safety Report 21043971 (Version 1)
Quarter: 2022Q3

REPORT INFORMATION
  Report Type: Spontaneous
  Country: RU (occurrence: RU)
  Receive Date: 20220705
  Receipt Date: 20220705
  Transmission Date: 20221026
  Serious: Yes (Life-Threatening, Other)
  Sender: FDA-Public Use
  Company Number: RU-SA-2022SA259774

PATIENT
  Age: 43 Year
  Sex: Male
  Weight: 80 kg

DRUGS (3)
  1. LANTUS SOLOSTAR [Suspect]
     Active Substance: INSULIN GLARGINE
  2. ISOPHANE INSULIN [Suspect]
     Active Substance: INSULIN NOS
  3. INSULIN DETEMIR [Suspect]
     Active Substance: INSULIN DETEMIR

REACTIONS (3)
  - Injection site pruritus [Recovered/Resolved]
  - Erythema [Recovered/Resolved]
  - Asphyxia [Recovered/Resolved]
